FAERS Safety Report 7673540-X (Version None)
Quarter: 2011Q3

REPORT INFORMATION
  Report Type: 
  Country: None (occurrence: None)
  Receive Date: 20110810
  Receipt Date: 20110727
  Transmission Date: 20111222
  Serious: Yes (Other)
  Sender: FDA-Public Use
  Company Number: DE-UCBSA-037350

PATIENT
  Sex: Female
  Weight: 80 kg

DRUGS (7)
  1. HYDROXYCHLOROQUINE SULFATE [Concomitant]
     Indication: RHEUMATOID ARTHRITIS
     Route: 048
     Dates: start: 20090505
  2. PREDNISOLONE [Concomitant]
     Indication: RHEUMATOID ARTHRITIS
     Route: 048
     Dates: start: 20080304
  3. METHOTREXATE [Concomitant]
     Indication: RHEUMATOID ARTHRITIS
     Route: 048
     Dates: start: 20091218
  4. AMLODIPINE [Concomitant]
     Indication: HYPERTENSION
     Route: 048
     Dates: start: 20100405
  5. CIMZIA [Suspect]
     Indication: RHEUMATOID ARTHRITIS
     Dosage: 200 MG
     Route: 058
     Dates: end: 20110121
  6. OMEPRAZOLE [Concomitant]
     Indication: GASTRIC DISORDER
     Route: 048
     Dates: start: 20080801
  7. ATACAND [Concomitant]
     Indication: HYPERTENSION
     Route: 048
     Dates: start: 20100928

REACTIONS (1)
  - CELLULITIS [None]
